FAERS Safety Report 7605952-4 (Version None)
Quarter: 2011Q3

REPORT INFORMATION
  Report Type: 
  Country: None (occurrence: None)
  Receive Date: 20110713
  Receipt Date: 20110629
  Transmission Date: 20111222
  Serious: Yes (Other)
  Sender: FDA-Public Use
  Company Number: PHHY2011US61275

PATIENT
  Sex: Male

DRUGS (3)
  1. SOLODEX [Concomitant]
  2. LAMICTAL [Interacting]
     Indication: CONVULSION
     Dosage: 400 MG, UNK
     Route: 048
     Dates: start: 20100101
  3. AMTURNIDE [Suspect]
     Dosage: 400 MG, UNK
     Route: 048
     Dates: start: 20100101

REACTIONS (2)
  - DRUG INTERACTION [None]
  - CONVULSION [None]
